FAERS Safety Report 12582855 (Version 1)
Quarter: 2016Q3

REPORT INFORMATION
  Report Type: Spontaneous
  Country: FR (occurrence: FR)
  Receive Date: 20160722
  Receipt Date: 20160722
  Transmission Date: 20161109
  Serious: Yes (Death, Hospitalization, Other)
  Sender: FDA-Public Use
  Company Number: FR-BRISTOL-MYERS SQUIBB COMPANY-BMS-2016-017765

PATIENT
  Age: 59 Year
  Sex: Female

DRUGS (3)
  1. STABLON [Concomitant]
     Active Substance: TIANEPTINE
     Indication: BIPOLAR DISORDER
     Dosage: STARTED BEFORE 2010
     Route: 065
     Dates: end: 201403
  2. ABILIFY [Suspect]
     Active Substance: ARIPIPRAZOLE
     Indication: BIPOLAR DISORDER
     Dosage: 15 MG, QD
     Route: 048
     Dates: start: 2010
  3. XEROQUEL [Concomitant]
     Active Substance: QUETIAPINE FUMARATE
     Indication: BIPOLAR DISORDER
     Dosage: UNK
     Route: 065
     Dates: start: 201403

REACTIONS (4)
  - Hepatitis [Fatal]
  - Pancreatic neoplasm [Fatal]
  - Jaundice [Fatal]
  - Gallbladder disorder [Fatal]

NARRATIVE: CASE EVENT DATE: 201602
